FAERS Safety Report 12956148 (Version 1)
Quarter: 2016Q4

REPORT INFORMATION
  Report Type: Spontaneous
  Country: US (occurrence: US)
  Receive Date: 20161118
  Receipt Date: 20161118
  Transmission Date: 20170207
  Serious: No
  Sender: FDA-Public Use
  Company Number: US-JNJFOC-20161017925

PATIENT
  Age: 55 Year
  Sex: Female
  Weight: 84.82 kg

DRUGS (1)
  1. CHILDRENS TYLENOL [Suspect]
     Active Substance: ACETAMINOPHEN
     Indication: PRODUCT USED FOR UNKNOWN INDICATION
     Dosage: 1 TSP, 1 TIME
     Route: 048

REACTIONS (5)
  - Intentional product use issue [Unknown]
  - Product physical issue [Unknown]
  - Intentional product misuse [Unknown]
  - Product odour abnormal [Unknown]
  - Drug administered to patient of inappropriate age [Unknown]
